FAERS Safety Report 14184471 (Version 15)
Quarter: 2022Q2

REPORT INFORMATION
  Report Type: Spontaneous
  Country: PT (occurrence: PT)
  Receive Date: 20171113
  Receipt Date: 20220512
  Transmission Date: 20220720
  Serious: Yes (Other)
  Sender: FDA-Public Use
  Company Number: PHHY2017PT166150

PATIENT
  Age: 1 Month
  Sex: Female
  Weight: 2.4 kg

DRUGS (20)
  1. ELTROMBOPAG [Suspect]
     Active Substance: ELTROMBOPAG
     Indication: Foetal exposure during pregnancy
     Dosage: MATERNAL EXPOSURE DURING PREGNANCY: 25 MG EVERY OTHER DAY
     Route: 064
  2. ELTROMBOPAG [Suspect]
     Active Substance: ELTROMBOPAG
     Dosage: MATERNAL EXPOSURE DURING PREGNANCY: ELTROMBOPAG AND CORTICOTHERAPY
     Route: 064
  3. ELTROMBOPAG [Suspect]
     Active Substance: ELTROMBOPAG
     Dosage: MATERNAL EXPOSURE DURING PREGNANCY:12.5 MG, QD
     Route: 064
     Dates: start: 20170804, end: 20170814
  4. ELTROMBOPAG [Suspect]
     Active Substance: ELTROMBOPAG
     Dosage: MATERNAL EXPOSURE DURING PREGNANCY: 50 MG, QD (INITIATED AT 27 WGA)
     Route: 064
     Dates: start: 20170718
  5. ELTROMBOPAG [Suspect]
     Active Substance: ELTROMBOPAG
     Dosage: MATERNAL EXPOSURE DURING PREGNANCY:25 MG, QD
     Route: 064
     Dates: start: 20170731, end: 2017
  6. METHYLPREDNISOLONE [Suspect]
     Active Substance: METHYLPREDNISOLONE
     Indication: Foetal exposure during pregnancy
     Dosage: MATERNAL EXPOSURE DURING PREGNANCY: 90 MG, QD
     Route: 064
  7. AZATHIOPRINE [Suspect]
     Active Substance: AZATHIOPRINE
     Indication: Foetal exposure during pregnancy
     Dosage: MATERNAL EXPOSURE DURING PREGNANCY:150 MG, QD
     Route: 064
     Dates: start: 20170712, end: 20170731
  8. DEXAMETHASONE [Suspect]
     Active Substance: DEXAMETHASONE
     Indication: Foetal exposure during pregnancy
     Dosage: MATERNAL EXPOSURE DURING PREGNANCY: 6 MG, QID
     Route: 064
  9. PREDNISOLONE [Suspect]
     Active Substance: PREDNISOLONE
     Indication: Foetal exposure during pregnancy
     Dosage: MATERNAL EXPOSURE DURING PREGNANCY:80 MG, QD
     Route: 064
     Dates: start: 20170703
  10. PREDNISOLONE [Suspect]
     Active Substance: PREDNISOLONE
     Dosage: MATERNAL EXPOSURE DURING PREGNANCY: 120 MG, QD
     Route: 064
     Dates: start: 20170707
  11. PREDNISOLONE [Suspect]
     Active Substance: PREDNISOLONE
     Dosage: MATERNAL EXPOSURE DURING PREGNANCY: 160 MG, QD
     Route: 064
     Dates: start: 20170711
  12. PREDNISOLONE [Suspect]
     Active Substance: PREDNISOLONE
     Dosage: MATERNAL EXPOSURE DURING PREGNANCY:120 MG,QD
     Route: 064
     Dates: start: 20170725
  13. PREDNISOLONE [Suspect]
     Active Substance: PREDNISOLONE
     Dosage: MATERNAL EXPOSURE DURING PREGNANCY: 80 MG,QD
     Route: 064
     Dates: start: 20170731
  14. PREDNISOLONE [Suspect]
     Active Substance: PREDNISOLONE
     Dosage: MATERNAL EXPOSURE DURING PREGNANCY: 40 MG, QD
     Route: 064
     Dates: start: 20170808, end: 20170816
  15. HUMAN IMMUNOGLOBULIN G [Suspect]
     Active Substance: HUMAN IMMUNOGLOBULIN G
     Indication: Foetal exposure during pregnancy
     Dosage: MATERNAL EXPOSURE DURING PREGNANCY: 1 GRAM PER KILOGRAM (1G/KG 4 DOSES)
     Route: 064
  16. ENOXAPARIN [Suspect]
     Active Substance: ENOXAPARIN
     Indication: Foetal exposure during pregnancy
     Dosage: MATERNAL EXPOSURE DURING PREGNANCY: 90 MG, QD
     Route: 064
  17. ENOXAPARIN [Suspect]
     Active Substance: ENOXAPARIN
     Dosage: MATERNAL EXPOSURE DURING PREGNANCY:120 MG, QD
     Route: 064
  18. ENOXAPARIN [Suspect]
     Active Substance: ENOXAPARIN
     Dosage: MATERNAL EXPOSURE DURING PREGNANCY:80 MG, QD
     Route: 064
  19. NIFEDIPINE [Suspect]
     Active Substance: NIFEDIPINE
     Indication: Foetal exposure during pregnancy
     Dosage: UNK
     Route: 064
  20. MISOPROSTOL [Suspect]
     Active Substance: MISOPROSTOL
     Indication: Foetal exposure during pregnancy
     Dosage: MATENRAL DOSE AT EXPOSURE: UNK
     Route: 064

REACTIONS (3)
  - Jaundice neonatal [Unknown]
  - Low birth weight baby [Unknown]
  - Foetal exposure during pregnancy [Unknown]
